FAERS Safety Report 13040742 (Version 2)
Quarter: 2017Q2

REPORT INFORMATION
  Report Type: Spontaneous
  Country: FR (occurrence: FR)
  Receive Date: 20161219
  Receipt Date: 20170615
  Transmission Date: 20170830
  Serious: Yes (Hospitalization, Other)
  Sender: FDA-Public Use
  Company Number: FR-PFIZER INC-2016576489

PATIENT
  Age: 6 Year
  Sex: Male

DRUGS (7)
  1. VINCRISTINE SULFATE. [Suspect]
     Active Substance: VINCRISTINE SULFATE
     Indication: NON-HODGKIN^S LYMPHOMA
     Dosage: UNK UNK, CYCLIC
     Route: 042
     Dates: start: 20161015, end: 20161104
  2. KIDROLASE [Suspect]
     Active Substance: ASPARAGINASE
     Indication: NON-HODGKIN^S LYMPHOMA
     Dosage: UNK, CYCLIC
     Route: 042
     Dates: start: 20161018, end: 20161104
  3. AUGMENTIN [Concomitant]
     Active Substance: AMOXICILLIN\CLAVULANATE POTASSIUM
  4. BACTRIM [Concomitant]
     Active Substance: SULFAMETHOXAZOLE\TRIMETHOPRIM
  5. KIDROLASE [Suspect]
     Active Substance: ASPARAGINASE
     Dosage: UNK
     Route: 030
     Dates: start: 20161107
  6. CERUBIDINE [Suspect]
     Active Substance: DAUNORUBICIN HYDROCHLORIDE
     Indication: NON-HODGKIN^S LYMPHOMA
     Dosage: UNK, CYCLIC
     Route: 042
     Dates: start: 20161016, end: 20161104
  7. METHOTREXATE BIODIM [Suspect]
     Active Substance: METHOTREXATE
     Indication: NON-HODGKIN^S LYMPHOMA
     Dosage: UNK, CYCLIC
     Route: 037
     Dates: start: 20161011, end: 20161107

REACTIONS (6)
  - Coma [Unknown]
  - Pyrexia [Unknown]
  - Neutropenia [Unknown]
  - Posterior reversible encephalopathy syndrome [Recovering/Resolving]
  - Malaise [Unknown]
  - Chest pain [Unknown]

NARRATIVE: CASE EVENT DATE: 20161109
